FAERS Safety Report 9952452 (Version 1)
Quarter: 2014Q1

REPORT INFORMATION
  Report Type: Spontaneous
  Country: US (occurrence: US)
  Receive Date: 20140304
  Receipt Date: 20140304
  Transmission Date: 20141002
  Serious: No
  Sender: FDA-Public Use
  Company Number: US-ABBVIE-13P-163-1071452-00

PATIENT
  Age: 14 Year
  Sex: Male
  Weight: 90.8 kg

DRUGS (9)
  1. HUMIRA [Suspect]
     Indication: CROHN^S DISEASE
     Dates: start: 201301
  2. SINGULAIR [Concomitant]
     Indication: ASTHMA
  3. NORVASC [Concomitant]
     Indication: BLOOD PRESSURE
  4. PROTONIX [Concomitant]
     Indication: CROHN^S DISEASE
  5. FERROUS SULFATE [Concomitant]
     Indication: PRODUCT USED FOR UNKNOWN INDICATION
  6. VITAMIN D [Concomitant]
     Indication: PRODUCT USED FOR UNKNOWN INDICATION
  7. FLOVENT [Concomitant]
     Indication: ASTHMA
  8. FLONASE [Concomitant]
     Indication: HYPERSENSITIVITY
  9. LEXAPRO [Concomitant]
     Indication: DEPRESSION

REACTIONS (9)
  - Off label use [Not Recovered/Not Resolved]
  - Injection site vesicles [Recovering/Resolving]
  - Injection site vesicles [Recovering/Resolving]
  - Injection site pain [Not Recovered/Not Resolved]
  - Injection site pain [Not Recovered/Not Resolved]
  - Injection site erythema [Not Recovered/Not Resolved]
  - Injection site induration [Not Recovered/Not Resolved]
  - Injection site swelling [Not Recovered/Not Resolved]
  - Injection site discolouration [Recovering/Resolving]
